FAERS Safety Report 4618490-8 (Version None)
Quarter: 2005Q1

REPORT INFORMATION
  Report Type: 
  Country: None (occurrence: None)
  Receive Date: 20050323
  Receipt Date: 20050309
  Transmission Date: 20050727
  Serious: Yes (Death, Life-Threatening, Hospitalization)
  Sender: FDA-Public Use
  Company Number: 2005034566

PATIENT
  Age: 94 Year
  Sex: Male

DRUGS (9)
  1. SULPERAZON              (SULBACTAM, CEFOPERAZONE) [Suspect]
     Indication: BILIARY TRACT INFECTION
     Dosage: 2 GRAM, INTRAV-
     Route: 042
     Dates: start: 20050216, end: 20050221
  2. BROMHEXINE HYDROCHLORIDE [Suspect]
     Indication: PNEUMONIA ASPIRATION
     Dosage: INTRAV-
     Route: 042
     Dates: start: 20050205, end: 20050216
  3. MINOCYCLINE HYDROCHLORIDE [Suspect]
     Indication: PNEUMONIA ASPIRATION
     Dosage: 200 MG (200 MG, 1 IN 1
     Dates: start: 20050207, end: 20050212
  4. LACTEC (CALCIUM CHLORIDE ANHYDROUS, POTASSIUM CHLORIDE, SODIUM [Suspect]
     Indication: ILL-DEFINED DISORDER
     Dosage: IN-
     Dates: start: 20050205, end: 20050217
  5. TEICOPLANIN [Suspect]
     Indication: PNEUMONIA ASPIRATION
     Dosage: 400 MG (400 MG, 1 IN 1
     Dates: start: 20050209, end: 20050214
  6. CEFEPIME HYDROCHLORIDE [Suspect]
     Indication: PNEUMONIA ASPIRATION
     Dosage: 2 GRAM (1 GRAM, 2 IN 1)
     Dates: start: 20050204, end: 20050208
  7. AMINO ACIDS/ELECTROLYTES/GLUCOSE/VITAMINS [Suspect]
     Indication: NUTRITIONAL SUPPORT
     Dosage: IN-
     Dates: start: 20050209, end: 20050216
  8. METOCLOPRAMIDE [Concomitant]
  9. INSULIN HUMAN [Concomitant]

REACTIONS (9)
  - ALANINE AMINOTRANSFERASE INCREASED [None]
  - ASPARTATE AMINOTRANSFERASE INCREASED [None]
  - BILIARY TRACT INFECTION [None]
  - CARDIAC FAILURE [None]
  - HEPATIC FUNCTION ABNORMAL [None]
  - INFLAMMATION [None]
  - JAUNDICE [None]
  - PLEURAL EFFUSION [None]
  - RESPIRATORY ARREST [None]
